FAERS Safety Report 13987827 (Version 2)
Quarter: 2017Q4

REPORT INFORMATION
  Report Type: Report from Study
  Country: IL (occurrence: IL)
  Receive Date: 20170919
  Receipt Date: 20171011
  Transmission Date: 20180321
  Serious: Yes (Hospitalization)
  Sender: FDA-Public Use
  Company Number: IL-BAYER-2015-391055

PATIENT
  Age: 48 Year
  Sex: Female

DRUGS (3)
  1. BETAFERON [Suspect]
     Active Substance: INTERFERON BETA-1B
     Indication: MULTIPLE SCLEROSIS
     Dosage: UNK
     Dates: start: 20030429
  2. BACLOSAL [Suspect]
     Active Substance: BACLOFEN
     Indication: GAIT DISTURBANCE
     Dosage: UNK
  3. BACLOSAL [Suspect]
     Active Substance: BACLOFEN
     Indication: BALANCE DISORDER

REACTIONS (9)
  - Urinary incontinence [None]
  - Incontinence [Not Recovered/Not Resolved]
  - Nuclear magnetic resonance imaging abnormal [None]
  - Gait disturbance [Not Recovered/Not Resolved]
  - Dysstasia [None]
  - Joint swelling [Recovering/Resolving]
  - Muscular weakness [None]
  - Cellulitis [Recovering/Resolving]
  - Balance disorder [None]

NARRATIVE: CASE EVENT DATE: 20160501
